FAERS Safety Report 19427411 (Version 1)
Quarter: 2021Q2

REPORT INFORMATION
  Report Type: Other
  Country: US (occurrence: US)
  Receive Date: 20210616
  Receipt Date: 20210616
  Transmission Date: 20210717
  Serious: Yes (Hospitalization, Other)
  Sender: FDA-Public Use
  Company Number: US-ROCHE-2846219

PATIENT
  Sex: Female

DRUGS (5)
  1. ACTEMRA [Suspect]
     Active Substance: TOCILIZUMAB
     Indication: AUTOIMMUNE DISORDER
  2. ACTEMRA [Suspect]
     Active Substance: TOCILIZUMAB
  3. ACTEMRA [Suspect]
     Active Substance: TOCILIZUMAB
     Indication: GIANT CELL ARTERITIS
     Dosage: INJECT 162MG SUBCUTANEOUSLY EVERY WEEK
     Route: 058
  4. ACTEMRA [Suspect]
     Active Substance: TOCILIZUMAB
  5. LIPITOR [Concomitant]
     Active Substance: ATORVASTATIN CALCIUM

REACTIONS (10)
  - Weight increased [Unknown]
  - Peripheral swelling [Unknown]
  - Ear swelling [Unknown]
  - Pain [Unknown]
  - Haemorrhage [Unknown]
  - Muscle spasms [Unknown]
  - Neck pain [Unknown]
  - Skin fissures [Unknown]
  - Myocardial infarction [Unknown]
  - Intestinal perforation [Unknown]
